FAERS Safety Report 4640832-8 (Version None)
Quarter: 2005Q2

REPORT INFORMATION
  Report Type: 
  Country: None (occurrence: None)
  Receive Date: 20050324
  Receipt Date: 20041206
  Transmission Date: 20051028
  Serious: Yes (Hospitalization)
  Sender: FDA-Public Use
  Company Number: 210797

PATIENT
  Age: 74 Year
  Sex: Male
  Weight: 80.7 kg

DRUGS (13)
  1. AVASTIN [Suspect]
     Indication: COLORECTAL CANCER METASTATIC
     Dosage: 5 MG/KG, Q2W, INTRAVENOUS
     Route: 042
     Dates: start: 20040920
  2. CHEMOTHERAPY NOS (ANTINEOPLASTIC AGENT NOS) [Concomitant]
  3. GLUCOPHAGE [Concomitant]
  4. GLIPIZIDE [Concomitant]
  5. INDERAL [Concomitant]
  6. ACTOS [Concomitant]
  7. LISINOPRIL [Concomitant]
  8. TRIAMTERENE HYDROCHLOROTHIAZIDE (TRIAMTERENE, HYDROCHLOROTHIAZIDE) [Concomitant]
  9. ZOCOR [Concomitant]
  10. FOLIC ACID [Concomitant]
  11. ARANESP [Concomitant]
  12. IRON (IRON NOS) [Concomitant]
  13. INSULIN [Concomitant]

REACTIONS (1)
  - ACUTE MYOCARDIAL INFARCTION [None]
